FAERS Safety Report 5557385-2 (Version None)
Quarter: 2007Q4

REPORT INFORMATION
  Report Type: 
  Country: None (occurrence: None)
  Receive Date: 20071211
  Receipt Date: 20071127
  Transmission Date: 20080405
  Serious: Yes (Congenital Anomaly)
  Sender: FDA-Public Use
  Company Number: TNZES200700138

PATIENT
  Age: 1 Day
  Sex: Male

DRUGS (1)
  1. INNOHEP (TINZPARIN SODIUM INJECTION) (TINZAPARIN SODIUM INJECTION) [Suspect]
     Indication: PROTEIN C DEFICIENCY
     Dosage: (4500 IU,DAILY), SUBCUTANEOUS
     Route: 058
     Dates: start: 20070701, end: 20071115

REACTIONS (2)
  - DRUG EXPOSURE DURING PREGNANCY [None]
  - PIERRE ROBIN SYNDROME [None]
